FAERS Safety Report 9627025 (Version 2)
Quarter: 2013Q4

REPORT INFORMATION
  Report Type: Spontaneous
  Country: US (occurrence: None)
  Receive Date: 20131011
  Receipt Date: 20131029
  Transmission Date: 20140711
  Serious: Yes (Other)
  Sender: FDA-Public Use
  Company Number: ACO_36167_2013

PATIENT
  Age: 77 Year
  Sex: Female
  Weight: 68 kg

DRUGS (9)
  1. AMPYRA [Suspect]
     Indication: GAIT DISTURBANCE
     Route: 048
     Dates: start: 201304
  2. LISINOPRIL (LISINOPRIL) [Concomitant]
  3. AMLODIPINE (AMLODIPINE BESILATE) [Concomitant]
  4. ATORVASTATIN (ATORVASTATIN CALCIUM) [Concomitant]
  5. ASPIRIN (ACETYLSALICYLIC ACID) [Concomitant]
  6. ADDERALL (AMFETAMINE ASPARTATE, AMFETAMINE SULFATE, DEXAMFETAMINE SACCHARATE, DEXAMFETAMINE SULFATE) [Concomitant]
  7. VITAMIN D (ERGOCALCIFEROL) [Concomitant]
  8. AVONEX (INTERFERON BETA-1A) [Concomitant]
  9. LEVOTHYROXINE SODIUM (LEVOTHYROXINE SODIUM) [Concomitant]

REACTIONS (16)
  - Amnesia [None]
  - Syncope [None]
  - Blood pressure decreased [None]
  - White matter lesion [None]
  - Clonus [None]
  - Hypertonia [None]
  - Dry mouth [None]
  - Chapped lips [None]
  - Fatigue [None]
  - Gait disturbance [None]
  - Urinary incontinence [None]
  - Band sensation [None]
  - Muscular weakness [None]
  - Hyperreflexia [None]
  - Drug ineffective [None]
  - Product quality issue [None]
